FAERS Safety Report 5930089-X (Version None)
Quarter: 2008Q4

REPORT INFORMATION
  Report Type: 
  Country: None (occurrence: None)
  Receive Date: 20081024
  Receipt Date: 20081020
  Transmission Date: 20090506
  Serious: No
  Sender: FDA-Public Use
  Company Number: US-B.I. PHARMACEUTICALS,INC./RIDGEFIELD-2008-BP-15304BP

PATIENT
  Sex: Male

DRUGS (2)
  1. CATAPRES-TTS-1 [Suspect]
     Indication: TOURETTE'S DISORDER
     Dosage: .1MG
     Route: 061
     Dates: start: 20070901, end: 20080903
  2. CLONIDINE [Concomitant]
     Indication: SLEEP DISORDER
     Dosage: 2MG
     Route: 048

REACTIONS (2)
  - APPLICATION SITE IRRITATION [None]
  - APPLICATION SITE SCAR [None]
